FAERS Safety Report 9925615 (Version 1)
Quarter: 2014Q1

REPORT INFORMATION
  Report Type: Spontaneous
  Country: US (occurrence: US)
  Receive Date: 20140226
  Receipt Date: 20140226
  Transmission Date: 20141002
  Serious: Yes (Hospitalization, Other)
  Sender: FDA-Public Use
  Company Number: US-SA-2014SA022364

PATIENT
  Age: 31 Year
  Sex: Female
  Weight: 181.43 kg

DRUGS (2)
  1. ENOXAPARIN SODIUM - WINTHROP [Suspect]
     Indication: PULMONARY EMBOLISM
     Route: 065
     Dates: start: 201012
  2. COUMADIN [Suspect]
     Route: 065

REACTIONS (4)
  - Adverse event [Not Recovered/Not Resolved]
  - Mass [Not Recovered/Not Resolved]
  - Haemorrhage [Not Recovered/Not Resolved]
  - Contusion [Not Recovered/Not Resolved]
